FAERS Safety Report 22036873 (Version 4)
Quarter: 2023Q2

REPORT INFORMATION
  Report Type: Spontaneous
  Country: JP (occurrence: JP)
  Receive Date: 20230225
  Receipt Date: 20230609
  Transmission Date: 20230721
  Serious: Yes (Life-Threatening, Other)
  Sender: FDA-Public Use
  Company Number: JP-AMGEN-JPNSP2023019376

PATIENT
  Age: 13 Year
  Sex: Male
  Weight: 37 kg

DRUGS (7)
  1. BLINCYTO [Suspect]
     Active Substance: BLINATUMOMAB
     Indication: B precursor type acute leukaemia
     Dosage: 6.6 MICROGRAM, QD
     Route: 040
     Dates: start: 20230130, end: 20230205
  2. BLINCYTO [Suspect]
     Active Substance: BLINATUMOMAB
     Dosage: 20 MICROGRAM, QD
     Route: 040
     Dates: start: 20230206, end: 20230218
  3. SULFAMETHOXAZOLE\TRIMETHOPRIM [Concomitant]
     Active Substance: SULFAMETHOXAZOLE\TRIMETHOPRIM
     Dosage: UNK
     Dates: start: 20230111
  4. STRONGER NEO-MINOPHAGEN C [Concomitant]
     Active Substance: AMMONIUM GLYCYRRHIZATE\CYSTEINE HYDROCHLORIDE\GLYCINE
     Dosage: 40 MILLILITER, QD
     Dates: start: 20230127, end: 20230202
  5. MEROPENEM [Concomitant]
     Active Substance: MEROPENEM
     Dosage: 1 GRAM, TID
     Dates: start: 20230126, end: 20230206
  6. HUMAN RED BLOOD CELL [Concomitant]
     Active Substance: HUMAN RED BLOOD CELL
     Dosage: UNK
     Dates: start: 20230130, end: 20230218
  7. PLATELETS [Concomitant]
     Active Substance: HUMAN PLATELET, ALLOGENIC
     Dosage: UNK
     Dates: start: 20230130, end: 20230218

REACTIONS (3)
  - Cytokine release syndrome [Recovering/Resolving]
  - Blast cell count increased [Recovered/Resolved]
  - Therapeutic product effect incomplete [Unknown]

NARRATIVE: CASE EVENT DATE: 20230131
